FAERS Safety Report 15403693 (Version 1)
Quarter: 2018Q3

REPORT INFORMATION
  Report Type: Spontaneous
  Country: US (occurrence: US)
  Receive Date: 20180919
  Receipt Date: 20180919
  Transmission Date: 20181010
  Serious: No
  Sender: FDA-Public Use
  Company Number: US-ALLERGAN-1759264US

PATIENT
  Sex: Female

DRUGS (3)
  1. PREDNISOLONE ACETATE. [Concomitant]
     Active Substance: PREDNISOLONE ACETATE
     Indication: EYE INFLAMMATION
     Dosage: UNK, QID
     Route: 047
  2. ACULAR LS [Suspect]
     Active Substance: KETOROLAC TROMETHAMINE
     Indication: EYE INFLAMMATION
     Dosage: UNK
     Route: 047
  3. PREDNISOLONE ACETATE. [Concomitant]
     Active Substance: PREDNISOLONE ACETATE
     Dosage: UNK, BID
     Route: 047

REACTIONS (6)
  - Photopsia [Recovering/Resolving]
  - Pain [Recovered/Resolved]
  - Eye inflammation [Unknown]
  - Eye swelling [Unknown]
  - Visual impairment [Unknown]
  - Therapeutic response decreased [Unknown]
